FAERS Safety Report 5236895-1 (Version None)
Quarter: 2007Q1

REPORT INFORMATION
  Report Type: 
  Country: None (occurrence: None)
  Receive Date: 20070213
  Receipt Date: 20070131
  Transmission Date: 20070707
  Serious: Yes (Hospitalization)
  Sender: FDA-Public Use
  Company Number: PHEH2006US13088

PATIENT
  Age: 77 Year
  Sex: Male
  Weight: 63.492 kg

DRUGS (12)
  1. NITROL [Concomitant]
  2. EXJADE [Suspect]
     Indication: IRON OVERLOAD
     Dosage: 1500 MG, QD
     Route: 048
     Dates: start: 20060801, end: 20060903
  3. EXJADE [Suspect]
     Dosage: 1500 MG, QD
     Route: 048
     Dates: start: 20061016, end: 20061016
  4. LEVOTHYROXINE SODIUM [Concomitant]
     Indication: HYPOTHYROIDISM
     Dosage: 0.125 MG, QD
     Route: 048
  5. PREDNISONE [Concomitant]
     Indication: RHEUMATOID ARTHRITIS
     Dosage: 10 MG, QD
     Route: 048
  6. PREDNISONE [Concomitant]
     Dosage: 60 MG, QD
     Dates: end: 20060909
  7. PREDNISONE [Concomitant]
     Dosage: 40 MG, QD
  8. COZAAR [Concomitant]
     Indication: PULMONARY HYPERTENSION
     Dosage: 37.5 MG, QD
     Route: 048
     Dates: start: 20060301, end: 20060903
  9. COZAAR [Concomitant]
     Dosage: 12.5 MG, QD
     Route: 048
     Dates: start: 20061001, end: 20061007
  10. COZAAR [Concomitant]
     Dosage: 25 MG, QD
     Route: 048
     Dates: start: 20061008, end: 20061014
  11. COZAAR [Concomitant]
     Dosage: 37.5 MG, QD
     Route: 048
     Dates: start: 20061015
  12. FOSAMAX ONCE WEEKLY [Concomitant]
     Dosage: 70 MG, QW

REACTIONS (43)
  - ALANINE AMINOTRANSFERASE INCREASED [None]
  - ANTIPHOSPHOLIPID ANTIBODIES POSITIVE [None]
  - ASPARTATE AMINOTRANSFERASE DECREASED [None]
  - ASTHENIA [None]
  - ATRIOVENTRICULAR BLOCK FIRST DEGREE [None]
  - ATRIOVENTRICULAR BLOCK SECOND DEGREE [None]
  - BIOPSY SKIN ABNORMAL [None]
  - BLOOD FIBRINOGEN INCREASED [None]
  - BLOOD LACTATE DEHYDROGENASE INCREASED [None]
  - BLOOD PRESSURE FLUCTUATION [None]
  - BONE MARROW FAILURE [None]
  - BURNING SENSATION [None]
  - C-REACTIVE PROTEIN INCREASED [None]
  - CHILLS [None]
  - DEHYDRATION [None]
  - DERMATITIS [None]
  - DIARRHOEA [None]
  - DILATATION ATRIAL [None]
  - DILATATION VENTRICULAR [None]
  - ERYTHEMA [None]
  - GALLBLADDER DISORDER [None]
  - GLUCOSE TOLERANCE IMPAIRED [None]
  - HAEMATOCRIT DECREASED [None]
  - HAEMOGLOBIN DECREASED [None]
  - HEADACHE [None]
  - HEART RATE IRREGULAR [None]
  - LEUKOCYTOCLASTIC VASCULITIS [None]
  - LIVER FUNCTION TEST ABNORMAL [None]
  - NEUTROPENIA [None]
  - OCCULT BLOOD POSITIVE [None]
  - ORTHOSTATIC HYPOTENSION [None]
  - PAIN OF SKIN [None]
  - PANCYTOPENIA [None]
  - PARAESTHESIA [None]
  - PERIODONTAL DISEASE [None]
  - PYREXIA [None]
  - RASH GENERALISED [None]
  - RED BLOOD CELL SEDIMENTATION RATE INCREASED [None]
  - SWELLING FACE [None]
  - THROMBOCYTOPENIA [None]
  - TOOTH EXTRACTION [None]
  - TRICUSPID VALVE INCOMPETENCE [None]
  - URINE ANALYSIS ABNORMAL [None]
